FAERS Safety Report 12820971 (Version 1)
Quarter: 2016Q4

REPORT INFORMATION
  Report Type: Report from Study
  Country: US (occurrence: US)
  Receive Date: 20161007
  Receipt Date: 20161007
  Transmission Date: 20170207
  Serious: Yes (Other)
  Sender: FDA-Public Use
  Company Number: US-ROCHE-1837035

PATIENT
  Age: 33 Year
  Sex: Female
  Weight: 49.8 kg

DRUGS (17)
  1. BEVACIZUMAB [Suspect]
     Active Substance: BEVACIZUMAB
     Dosage: OVER 30-90 MIN (BEGINNING ON COURSE 2) ON DAY 1 OF EACH 21 DAY CYCLE UNTILL DISEASE PROGRESSION OR U
     Route: 042
     Dates: start: 10120221
  2. VELIPARIB [Suspect]
     Active Substance: VELIPARIB
     Dosage: ON DAYS 1 TO 21 FOR 6 CYCLES (EACH CYCLE OF 21 DAYS)?COURSE 3
     Route: 048
     Dates: start: 20120131
  3. BEVACIZUMAB [Suspect]
     Active Substance: BEVACIZUMAB
     Dosage: OVER 30-90 MIN (BEGINNING ON COURSE 2) ON DAY 1 OF EACH 21 DAY CYCLE UNTILL DISEASE PROGRESSION OR U
     Route: 042
     Dates: start: 20120724
  4. VELIPARIB [Suspect]
     Active Substance: VELIPARIB
     Dosage: ON DAYS 1 TO 21 FOR 6 CYCLES (EACH CYCLE OF 21 DAYS)?COURSE 5
     Route: 048
     Dates: start: 20120313
  5. BEVACIZUMAB [Suspect]
     Active Substance: BEVACIZUMAB
     Indication: OVARIAN EPITHELIAL CANCER
     Dosage: OVER 30-90 MIN (BEGINNING ON COURSE 2) ON DAY 1 OF EACH 21 DAY CYCLE UNTILL DISEASE PROGRESSION OR U
     Route: 042
     Dates: start: 20120110
  6. VELIPARIB [Suspect]
     Active Substance: VELIPARIB
     Dosage: ON DAYS 1 TO 21 FOR 6 CYCLES (EACH CYCLE OF 21 DAYS)?COURSE 4
     Route: 048
     Dates: start: 10120221
  7. BEVACIZUMAB [Suspect]
     Active Substance: BEVACIZUMAB
     Dosage: OVER 30-90 MIN (BEGINNING ON COURSE 2) ON DAY 1 OF EACH 21 DAY CYCLE UNTILL DISEASE PROGRESSION OR U
     Route: 042
     Dates: start: 20120313
  8. BEVACIZUMAB [Suspect]
     Active Substance: BEVACIZUMAB
     Dosage: OVER 30-90 MIN (BEGINNING ON COURSE 2) ON DAY 1 OF EACH 21 DAY CYCLE UNTILL DISEASE PROGRESSION OR U
     Route: 042
     Dates: start: 20120403
  9. BEVACIZUMAB [Suspect]
     Active Substance: BEVACIZUMAB
     Dosage: OVER 30-90 MIN (BEGINNING ON COURSE 2) ON DAY 1 OF EACH 21 DAY CYCLE UNTILL DISEASE PROGRESSION OR U
     Route: 042
     Dates: start: 20120515
  10. BEVACIZUMAB [Suspect]
     Active Substance: BEVACIZUMAB
     Dosage: OVER 30-90 MIN (BEGINNING ON COURSE 2) ON DAY 1 OF EACH 21 DAY CYCLE UNTILL DISEASE PROGRESSION OR U
     Route: 042
     Dates: start: 20120424
  11. BEVACIZUMAB [Suspect]
     Active Substance: BEVACIZUMAB
     Dosage: OVER 30-90 MIN (BEGINNING ON COURSE 2) ON DAY 1 OF EACH 21 DAY CYCLE UNTILL DISEASE PROGRESSION OR U
     Route: 042
     Dates: start: 20120612
  12. VELIPARIB [Suspect]
     Active Substance: VELIPARIB
     Dosage: ON DAYS 1 TO 21 FOR 6 CYCLES (EACH CYCLE OF 21 DAYS)?COURSE 2
     Route: 048
     Dates: start: 20120110
  13. BEVACIZUMAB [Suspect]
     Active Substance: BEVACIZUMAB
     Dosage: OVER 30-90 MIN (BEGINNING ON COURSE 2) ON DAY 1 OF EACH 21 DAY CYCLE UNTILL DISEASE PROGRESSION OR U
     Route: 042
     Dates: start: 20120703
  14. VELIPARIB [Suspect]
     Active Substance: VELIPARIB
     Dosage: ON DAYS 1 TO 21 FOR 6 CYCLES (EACH CYCLE OF 21 DAYS)?COURSE 6
     Route: 048
     Dates: start: 20120403, end: 20120403
  15. BEVACIZUMAB [Suspect]
     Active Substance: BEVACIZUMAB
     Dosage: OVER 30-90 MIN (BEGINNING ON COURSE 2) ON DAY 1 OF EACH 21 DAY CYCLE UNTILL DISEASE PROGRESSION OR U
     Route: 042
     Dates: start: 20120814, end: 20120814
  16. VELIPARIB [Suspect]
     Active Substance: VELIPARIB
     Indication: OVARIAN EPITHELIAL CANCER
     Dosage: ON DAYS 1 TO 21 FOR 6 CYCLES (EACH CYCLE OF 21 DAYS)?COURSE 1
     Route: 048
     Dates: start: 20111221
  17. BEVACIZUMAB [Suspect]
     Active Substance: BEVACIZUMAB
     Dosage: OVER 30-90 MIN (BEGINNING ON COURSE 2) ON DAY 1 OF EACH 21 DAY CYCLE UNTILL DISEASE PROGRESSION OR U
     Route: 042
     Dates: start: 20120131

REACTIONS (4)
  - Rectal haemorrhage [Unknown]
  - Weight increased [Unknown]
  - Wound dehiscence [Unknown]
  - Alanine aminotransferase increased [Unknown]
